FAERS Safety Report 19089464 (Version 2)
Quarter: 2021Q2

REPORT INFORMATION
  Report Type: Report from Study
  Country: TZ (occurrence: TZ)
  Receive Date: 20210403
  Receipt Date: 20210512
  Transmission Date: 20210717
  Serious: Yes (Hospitalization, Other)
  Sender: FDA-Public Use
  Company Number: TZ-CIPLA LTD.-2021TZ02488

PATIENT

DRUGS (2)
  1. ABACAVIR/LAMIVUDINE [Suspect]
     Active Substance: ABACAVIR\LAMIVUDINE
     Indication: HIV INFECTION
     Dosage: 90MG/45 MG, BID
     Route: 048
     Dates: start: 20180320, end: 20190320
  2. LOPINAVIR/RITONAVIR [Suspect]
     Active Substance: LOPINAVIR\RITONAVIR
     Indication: HIV INFECTION
     Dosage: 120/30 MG , BID
     Route: 048
     Dates: start: 20180320, end: 20190320

REACTIONS (3)
  - Malaria [Recovered/Resolved]
  - Pneumonia [Recovered/Resolved]
  - Pneumocystis jirovecii pneumonia [Recovered/Resolved]

NARRATIVE: CASE EVENT DATE: 20180712
